FAERS Safety Report 25122820 (Version 1)
Quarter: 2025Q1

REPORT INFORMATION
  Report Type: Spontaneous
  Country: NO (occurrence: NO)
  Receive Date: 20250326
  Receipt Date: 20250326
  Transmission Date: 20250409
  Serious: Yes (Hospitalization, Disabling, Other)
  Sender: SAMSUNG BIOEPIS
  Company Number: None

PATIENT
  Age: 15 Year
  Sex: Female

DRUGS (6)
  1. ADALIMUMAB [Suspect]
     Active Substance: ADALIMUMAB
     Indication: Colitis ulcerative
     Dosage: STARTED WITH 40 MG ADALIMUMAB SUBCUTANEOUS INJECTION /DEC/2022 EVERY OTHER WEEK. ?FLARE-UP IN /MAY/2
     Route: 058
     Dates: start: 20221213
  2. ADALIMUMAB [Suspect]
     Active Substance: ADALIMUMAB
     Dosage: STARTED WITH 40 MG ADALIMUMAB SUBCUTANEOUS INJECTION /DEC/2022 EVERY OTHER WEEK. ?FLARE-UP IN /MAY/2
     Route: 058
  3. ADALIMUMAB [Suspect]
     Active Substance: ADALIMUMAB
     Dosage: STARTED WITH 40 MG ADALIMUMAB SUBCUTANEOUS INJECTION /DEC/2022 EVERY OTHER WEEK. ?FLARE-UP IN /MAY/2
     Route: 058
     Dates: start: 202411
  4. ADALIMUMAB [Suspect]
     Active Substance: ADALIMUMAB
     Dosage: STARTED WITH 40 MG ADALIMUMAB SUBCUTANEOUS INJECTION /DEC/2022 EVERY OTHER WEEK. ?FLARE-UP IN /MAY/2
     Route: 058
  5. ASACOL [Concomitant]
     Active Substance: MESALAMINE
     Indication: Colitis ulcerative
  6. SUMATRIPTAN SUCCINATE [Concomitant]
     Active Substance: SUMATRIPTAN SUCCINATE
     Indication: Migraine

REACTIONS (4)
  - Colitis ulcerative [Unknown]
  - Headache [Unknown]
  - Diplopia [Recovering/Resolving]
  - Multiple sclerosis [Recovering/Resolving]

NARRATIVE: CASE EVENT DATE: 20230501
